FAERS Safety Report 15759446 (Version 1)
Quarter: 2018Q4

REPORT INFORMATION
  Report Type: Spontaneous
  Country: US (occurrence: US)
  Receive Date: 20181226
  Receipt Date: 20181226
  Transmission Date: 20190205
  Serious: Yes (Other)
  Sender: FDA-Public Use
  Company Number: US-BRISTOL-MYERS SQUIBB COMPANY-BMS-2018-120157

PATIENT
  Age: 84 Year
  Sex: Male
  Weight: 81.18 kg

DRUGS (4)
  1. ALLOPURINOL. [Concomitant]
     Active Substance: ALLOPURINOL
     Indication: PRODUCT USED FOR UNKNOWN INDICATION
     Route: 065
  2. STATIN                             /00036501/ [Concomitant]
     Active Substance: NYSTATIN
     Indication: PRODUCT USED FOR UNKNOWN INDICATION
     Route: 065
  3. METOPROLOL. [Concomitant]
     Active Substance: METOPROLOL
     Indication: PRODUCT USED FOR UNKNOWN INDICATION
     Route: 065
  4. ELIQUIS [Suspect]
     Active Substance: APIXABAN
     Indication: CEREBROVASCULAR ACCIDENT PROPHYLAXIS
     Dosage: 5 MG, UNK
     Route: 048
     Dates: start: 201805

REACTIONS (11)
  - Impaired healing [Unknown]
  - Joint swelling [Unknown]
  - Dizziness [Unknown]
  - Contusion [Unknown]
  - Injury [Unknown]
  - Fall [Unknown]
  - Arthralgia [Unknown]
  - Haemorrhage [Unknown]
  - Gait disturbance [Unknown]
  - Diplopia [Unknown]
  - Fatigue [Unknown]

NARRATIVE: CASE EVENT DATE: 20181215
